FAERS Safety Report 24806367 (Version 2)
Quarter: 2025Q1

REPORT INFORMATION
  Report Type: Spontaneous
  Country: US (occurrence: US)
  Receive Date: 20250103
  Receipt Date: 20250109
  Transmission Date: 20250409
  Serious: Yes (Life-Threatening, Other)
  Sender: PFIZER
  Company Number: US-PFIZER INC-PV202400169198

PATIENT
  Age: 89 Year
  Sex: Female

DRUGS (1)
  1. HEPARIN SODIUM [Suspect]
     Active Substance: HEPARIN SODIUM
     Indication: Acute myocardial infarction

REACTIONS (1)
  - Shock haemorrhagic [Recovered/Resolved]
